FAERS Safety Report 24649967 (Version 4)
Quarter: 2025Q1

REPORT INFORMATION
  Report Type: Spontaneous
  Country: US (occurrence: US)
  Receive Date: 20241122
  Receipt Date: 20250318
  Transmission Date: 20250409
  Serious: No
  Sender: SANOFI AVENTIS
  Company Number: US-SA-2024SA335439

PATIENT
  Age: 3 Year
  Sex: Female

DRUGS (2)
  1. DUPIXENT [Suspect]
     Active Substance: DUPILUMAB
     Indication: Eczema
     Dosage: 300 MG, Q4W
     Route: 058
     Dates: start: 202409
  2. DUPIXENT [Suspect]
     Active Substance: DUPILUMAB
     Indication: Dermatitis allergic

REACTIONS (20)
  - Dry skin [Unknown]
  - Eyelid rash [Unknown]
  - Eyelid skin dryness [Unknown]
  - Bruxism [Unknown]
  - Illness [Unknown]
  - Injection site mass [Recovered/Resolved]
  - Injection site discharge [Recovered/Resolved]
  - Viral infection [Unknown]
  - Diarrhoea [Unknown]
  - Pyrexia [Recovering/Resolving]
  - Decreased appetite [Unknown]
  - Fatigue [Recovered/Resolved]
  - Cough [Recovering/Resolving]
  - Rash [Unknown]
  - Eczema [Not Recovered/Not Resolved]
  - Lip dry [Not Recovered/Not Resolved]
  - Chapped lips [Not Recovered/Not Resolved]
  - Hypersensitivity [Unknown]
  - Oral herpes [Unknown]
  - Injection site pain [Recovered/Resolved]

NARRATIVE: CASE EVENT DATE: 20240101
